FAERS Safety Report 6123958-1 (Version None)
Quarter: 2009Q1

REPORT INFORMATION
  Report Type: 
  Country: None (occurrence: None)
  Receive Date: 20090318
  Receipt Date: 20090318
  Transmission Date: 20090719
  Serious: Yes (Other)
  Sender: FDA-Public Use
  Company Number: None

PATIENT
  Age: 50 Year
  Sex: Female
  Weight: 56.6996 kg

DRUGS (2)
  1. ACTONEL [Suspect]
     Indication: FIBROMYALGIA
     Dosage: 1 PILL ONCE A MONTH PO
     Route: 048
     Dates: start: 20090310, end: 20090310
  2. ACTONEL [Suspect]
     Indication: OSTEOARTHRITIS
     Dosage: 1 PILL ONCE A MONTH PO
     Route: 048
     Dates: start: 20090310, end: 20090310

REACTIONS (16)
  - ABDOMINAL DISCOMFORT [None]
  - BONE DISORDER [None]
  - CHILLS [None]
  - DIZZINESS [None]
  - ERYTHEMA [None]
  - FATIGUE [None]
  - FEELING ABNORMAL [None]
  - HEADACHE [None]
  - MALAISE [None]
  - MIDDLE INSOMNIA [None]
  - NAUSEA [None]
  - OEDEMA PERIPHERAL [None]
  - OROPHARYNGEAL PAIN [None]
  - PAIN [None]
  - PAIN IN EXTREMITY [None]
  - POOR QUALITY SLEEP [None]
